FAERS Safety Report 6619449-1 (Version None)
Quarter: 2010Q1

REPORT INFORMATION
  Report Type: 
  Country: None (occurrence: None)
  Receive Date: 20100309
  Receipt Date: 20100227
  Transmission Date: 20100710
  Serious: Yes (Death, Other)
  Sender: FDA-Public Use
  Company Number: US-BAYER-201017987GPV

PATIENT
  Age: 71 Year
  Sex: Male

DRUGS (6)
  1. FLUDARABINE [Suspect]
     Indication: CHRONIC LYMPHOCYTIC LEUKAEMIA
     Dosage: 5 CYCLES
  2. PREDNISONE [Suspect]
     Indication: MULTIPLE MYELOMA
  3. CYCLOPHOSPHAMIDE [Suspect]
     Indication: MULTIPLE MYELOMA
     Dosage: 5 CYCLES
  4. CYCLOPHOSPHAMIDE [Suspect]
  5. RITUXIMAB [Suspect]
     Indication: CHRONIC LYMPHOCYTIC LEUKAEMIA
     Dosage: 5 CYCLES
  6. TRANSFUSION SUPPORT [Concomitant]

REACTIONS (7)
  - BONE MARROW FAILURE [None]
  - DEEP VEIN THROMBOSIS [None]
  - HERPES ZOSTER [None]
  - MULTIPLE MYELOMA [None]
  - NEUROENDOCRINE CARCINOMA OF THE SKIN [None]
  - PANCYTOPENIA [None]
  - STAPHYLOCOCCAL BACTERAEMIA [None]
